FAERS Safety Report 9686682 (Version 3)
Quarter: 2015Q2

REPORT INFORMATION
  Report Type: Spontaneous
  Country: JP (occurrence: JP)
  Receive Date: 20131113
  Receipt Date: 20150420
  Transmission Date: 20150821
  Serious: Yes (Other)
  Sender: FDA-Public Use
  Company Number: JP-PFIZER INC-2013321129

PATIENT
  Age: 70 Year
  Sex: Male

DRUGS (1)
  1. GLIVEC [Suspect]
     Active Substance: IMATINIB MESYLATE

REACTIONS (2)
  - Hepatic function abnormal [Unknown]
  - Epidural haemorrhage [Recovering/Resolving]

NARRATIVE: CASE EVENT DATE: 201310
